FAERS Safety Report 7203516-8 (Version None)
Quarter: 2010Q4

REPORT INFORMATION
  Report Type: 
  Country: None (occurrence: None)
  Receive Date: 20101230
  Receipt Date: 20101222
  Transmission Date: 20110411
  Serious: Yes (Hospitalization)
  Sender: FDA-Public Use
  Company Number: DE-BRISTOL-MYERS SQUIBB COMPANY-15464589

PATIENT
  Age: 42 Year
  Sex: Male
  Weight: 50 kg

DRUGS (4)
  1. CETUXIMAB [Suspect]
     Indication: NON-SMALL CELL LUNG CANCER
     Dosage: STRENGTH:5MG/ML RECENT DOSE(5TH):14DEC10
     Route: 042
     Dates: start: 20101116
  2. CISPLATIN [Suspect]
     Indication: NON-SMALL CELL LUNG CANCER
     Dosage: RECENT DOSE(2ND):07DEC10
     Route: 042
     Dates: start: 20101116
  3. CILENGITIDE [Suspect]
     Indication: NON-SMALL CELL LUNG CANCER
     Dosage: RECENT DOSE(5TH):14DEC10
     Route: 042
     Dates: start: 20101116
  4. GEMCITABINE [Suspect]
     Indication: NON-SMALL CELL LUNG CANCER
     Dosage: DAY 1 AND DAY 8 OF EACH 3WK CYCLE RECENT DOSE(4TH):14DEC10
     Route: 042
     Dates: start: 20101116

REACTIONS (1)
  - CONVULSION [None]
